FAERS Safety Report 24590657 (Version 2)
Quarter: 2025Q1

REPORT INFORMATION
  Report Type: Spontaneous
  Country: US (occurrence: US)
  Receive Date: 20241107
  Receipt Date: 20250102
  Transmission Date: 20250409
  Serious: No
  Sender: INCYTE
  Company Number: US-INCYTE CORPORATION-2024IN011251

PATIENT

DRUGS (2)
  1. OPZELURA [Suspect]
     Active Substance: RUXOLITINIB PHOSPHATE
     Indication: Dermatitis atopic
     Dosage: BID WHEN SHE NEEDS TO
     Route: 065
     Dates: start: 20240730
  2. RINVOQ [Concomitant]
     Active Substance: UPADACITINIB
     Route: 065
     Dates: start: 202308

REACTIONS (1)
  - Pruritus [Unknown]
